FAERS Safety Report 4299233-7 (Version None)
Quarter: 2004Q1

REPORT INFORMATION
  Report Type: 
  Country: None (occurrence: None)
  Receive Date: 20040217
  Receipt Date: 20040202
  Transmission Date: 20041129
  Serious: Yes (Hospitalization)
  Sender: FDA-Public Use
  Company Number: 2002IM000914

PATIENT
  Age: 59 Year
  Sex: Female
  Weight: 56.3 kg

DRUGS (7)
  1. ACTIMMUNE [Suspect]
     Indication: OVARIAN CANCER
     Dosage: 100 UG; TIW; SUBCUTANEOUS
     Route: 058
     Dates: start: 20021104, end: 20021122
  2. CARBOPLATIN [Suspect]
     Indication: OVARIAN CANCER
     Dosage: 740 MG; Q3W; INTRAVENOUS
     Route: 042
     Dates: start: 20021104, end: 20021104
  3. PACLITAXEL [Suspect]
     Indication: OVARIAN CANCER
     Dosage: 315 MG; Q3W; INTRAVENOUS
     Route: 042
     Dates: start: 20021104, end: 20021104
  4. ACETAMINOPHEN [Concomitant]
  5. IBUPROFEN [Concomitant]
  6. ONDANSETRON HCL [Concomitant]
  7. HYDROCODONE/APAP [Concomitant]

REACTIONS (30)
  - ABDOMINAL ABSCESS [None]
  - ABDOMINAL DISTENSION [None]
  - ABSCESS DRAINAGE [None]
  - ACQUIRED DIAPHRAGMATIC EVENTRATION [None]
  - ADHESION [None]
  - ALPHA HAEMOLYTIC STREPTOCOCCAL INFECTION [None]
  - ANAEMIA [None]
  - ASTHENIA [None]
  - AZOTAEMIA [None]
  - BACTEROIDES INFECTION [None]
  - BLOOD CREATINE INCREASED [None]
  - BOWEL SOUNDS ABNORMAL [None]
  - CONSTIPATION [None]
  - DEPRESSION [None]
  - DIAPHRAGM NEOPLASM [None]
  - DIARRHOEA [None]
  - EJECTION FRACTION DECREASED [None]
  - FAECAL OCCULT BLOOD POSITIVE [None]
  - FATIGUE [None]
  - GASTROINTESTINAL EROSION [None]
  - INTESTINAL FISTULA [None]
  - INTESTINAL OBSTRUCTION [None]
  - NAUSEA [None]
  - OEDEMA PERIPHERAL [None]
  - PITTING OEDEMA [None]
  - PURULENT DISCHARGE [None]
  - PYREXIA [None]
  - URINE OUTPUT DECREASED [None]
  - VOMITING [None]
  - WEIGHT DECREASED [None]
